FAERS Safety Report 4781063-0 (Version None)
Quarter: 2005Q3

REPORT INFORMATION
  Report Type: 
  Country: None (occurrence: None)
  Receive Date: 20050926
  Receipt Date: 20050915
  Transmission Date: 20060218
  Serious: Yes (Death)
  Sender: FDA-Public Use
  Company Number: GBWYE982215SEP05

PATIENT
  Age: 21 Year
  Sex: Female

DRUGS (5)
  1. ANADIN PARACETAMOL (ACETAMINOPHEN, TABLET, 0) [Suspect]
  2. PROPOXYPHENE HCL [Suspect]
  3. MIRTAZAPINE [Suspect]
  4. VENLAFAXINE HCL [Suspect]
  5. ZOLPIDEM TARTRATE [Suspect]

REACTIONS (1)
  - DEATH [None]
